FAERS Safety Report 18604066 (Version 1)
Quarter: 2020Q4

REPORT INFORMATION
  Report Type: Spontaneous
  Country: TR (occurrence: TR)
  Receive Date: 20201211
  Receipt Date: 20201211
  Transmission Date: 20210114
  Serious: Yes (Hospitalization, Other)
  Sender: FDA-Public Use
  Company Number: TR-SUN PHARMACEUTICAL INDUSTRIES LTD-2020R1-270538

PATIENT
  Age: 12 Year
  Sex: Female

DRUGS (2)
  1. SALBUTAMOL [Suspect]
     Active Substance: ALBUTEROL
     Indication: ASTHMA
     Dosage: 2 DOSAGE FORM, TID
  2. SALBUTAMOL [Suspect]
     Active Substance: ALBUTEROL
     Dosage: 3 DOSAGE FORM(OVER 20 MINUTES IN THE MORNING)

REACTIONS (1)
  - Myocardial infarction [Recovered/Resolved]
